FAERS Safety Report 4413820-4 (Version None)
Quarter: 2004Q3

REPORT INFORMATION
  Report Type: 
  Country: None (occurrence: None)
  Receive Date: 20040803
  Receipt Date: 20040622
  Transmission Date: 20050211
  Serious: Yes (Death, Other)
  Sender: FDA-Public Use
  Company Number: PHBS2004JP08304

PATIENT
  Age: 66 Year
  Sex: Male
  Weight: 53 kg

DRUGS (5)
  1. VOLTAREN [Suspect]
     Indication: POST PROCEDURAL PAIN
     Dosage: 25 MG, ONCE/SINGLE
     Route: 048
     Dates: start: 20040620, end: 20040620
  2. ROHYPNOL [Concomitant]
     Dosage: 1 DF/DAY
     Route: 048
  3. 8-HOUR BAYER [Concomitant]
     Dosage: 1 DF/DAY
     Route: 048
  4. KALIMATE [Concomitant]
     Dosage: 5 G/DAY
     Route: 048
  5. NIPOLAZIN [Concomitant]
     Dosage: 6 MG/DAY
     Route: 048

REACTIONS (17)
  - CARDIAC ARREST [None]
  - DEHYDRATION [None]
  - DERMATITIS ALLERGIC [None]
  - DYSPNOEA [None]
  - ENCEPHALOPATHY [None]
  - GRAND MAL CONVULSION [None]
  - HYPERHIDROSIS [None]
  - LABILE BLOOD PRESSURE [None]
  - LOSS OF CONSCIOUSNESS [None]
  - MALAISE [None]
  - METABOLIC ACIDOSIS [None]
  - MUSCLE SPASMS [None]
  - PERIPHERAL COLDNESS [None]
  - PRURITUS [None]
  - RASH ERYTHEMATOUS [None]
  - RESPIRATION ABNORMAL [None]
  - RESPIRATORY ARREST [None]
